FAERS Safety Report 23673473 (Version 1)
Quarter: 2024Q1

REPORT INFORMATION
  Report Type: Spontaneous
  Country: CN (occurrence: CN)
  Receive Date: 20240326
  Receipt Date: 20240326
  Transmission Date: 20240410
  Serious: Yes (Hospitalization, Other)
  Sender: FDA-Public Use
  Company Number: CN-009507513-2403CHN007918

PATIENT
  Age: 69 Year
  Sex: Male
  Weight: 58.9 kg

DRUGS (5)
  1. KEYTRUDA [Suspect]
     Active Substance: PEMBROLIZUMAB
     Indication: Oesophageal carcinoma
     Dosage: 100 MG, ONE TIME ONE DAY
     Route: 041
     Dates: start: 20240223, end: 20240223
  2. CISPLATIN [Suspect]
     Active Substance: CISPLATIN
     Indication: Oesophageal carcinoma
     Dosage: 30 MG D1-3, ONE TIME ONE DAY
     Route: 041
     Dates: start: 20240223, end: 20240225
  3. PACLITAXEL [Suspect]
     Active Substance: PACLITAXEL
     Indication: Oesophageal carcinoma
     Dosage: 300 MG D1, ONE TIME ONE DAY
     Route: 041
     Dates: start: 20240223, end: 20240223
  4. SODIUM CHLORIDE [Concomitant]
     Active Substance: SODIUM CHLORIDE
     Dosage: 100ML D1
     Dates: start: 20240223, end: 20240223
  5. SODIUM CHLORIDE [Concomitant]
     Active Substance: SODIUM CHLORIDE
     Dosage: 500ML D1-3
     Dates: start: 20240223, end: 20240225

REACTIONS (3)
  - Myelosuppression [Recovering/Resolving]
  - Incorrect dose administered [Unknown]
  - Product use issue [Unknown]

NARRATIVE: CASE EVENT DATE: 20240223
